FAERS Safety Report 13124846 (Version 1)
Quarter: 2017Q1

REPORT INFORMATION
  Report Type: Spontaneous
  Country: US (occurrence: US)
  Receive Date: 20170118
  Receipt Date: 20170118
  Transmission Date: 20170428
  Serious: Yes (Hospitalization)
  Sender: FDA-Public Use
  Company Number: US-BEH-2017077073

PATIENT
  Age: 62 Year
  Sex: Female
  Weight: 81.18 kg

DRUGS (31)
  1. MAXALT [Concomitant]
     Active Substance: RIZATRIPTAN BENZOATE
  2. ZANAFLEX [Concomitant]
     Active Substance: TIZANIDINE HYDROCHLORIDE
  3. LANTUS [Concomitant]
     Active Substance: INSULIN GLARGINE
  4. METFORMIN [Concomitant]
     Active Substance: METFORMIN HYDROCHLORIDE
  5. VITAMIN D                          /00107901/ [Concomitant]
     Active Substance: ERGOCALCIFEROL
  6. TOPAMAX [Concomitant]
     Active Substance: TOPIRAMATE
  7. LOVAZA [Concomitant]
     Active Substance: OMEGA-3-ACID ETHYL ESTERS
  8. JANUVIA [Concomitant]
     Active Substance: SITAGLIPTIN PHOSPHATE
  9. SOMA [Concomitant]
     Active Substance: CARISOPRODOL
  10. BIOTIN [Concomitant]
     Active Substance: BIOTIN
  11. NEXIUM [Concomitant]
     Active Substance: ESOMEPRAZOLE MAGNESIUM
  12. ASPIRIN. [Concomitant]
     Active Substance: ASPIRIN
  13. FIORICET [Concomitant]
     Active Substance: ACETAMINOPHEN\BUTALBITAL\CAFFEINE
  14. TRAZODONE [Concomitant]
     Active Substance: TRAZODONE HYDROCHLORIDE
  15. LEVBID [Concomitant]
     Active Substance: HYOSCYAMINE SULFATE
  16. LORTAB [Concomitant]
     Active Substance: ACETAMINOPHEN\HYDROCODONE BITARTRATE
  17. HIZENTRA [Suspect]
     Active Substance: HUMAN IMMUNOGLOBULIN G
     Indication: IMMUNODEFICIENCY COMMON VARIABLE
     Dosage: 12 G, QW
     Route: 058
     Dates: start: 20120705
  18. QUINAPRIL. [Concomitant]
     Active Substance: QUINAPRIL
  19. WELLBUTRIN [Concomitant]
     Active Substance: BUPROPION HYDROCHLORIDE
  20. S-ADENOSYLMETHIONINE SULFATE P-TOLUENESULFONATE [Concomitant]
     Active Substance: ADEMETIONINE SULFATE TOSILATE
  21. ZOLOFT [Concomitant]
     Active Substance: SERTRALINE HYDROCHLORIDE
  22. MUCINEX DM [Concomitant]
     Active Substance: DEXTROMETHORPHAN HYDROBROMIDE\GUAIFENESIN
  23. EPIPEN [Concomitant]
     Active Substance: EPINEPHRINE
  24. ZOCOR [Concomitant]
     Active Substance: SIMVASTATIN
  25. TENORMIN [Concomitant]
     Active Substance: ATENOLOL
  26. AMARYL [Concomitant]
     Active Substance: GLIMEPIRIDE
  27. REGLAN [Concomitant]
     Active Substance: METOCLOPRAMIDE HYDROCHLORIDE
  28. TRICOR                             /00090101/ [Concomitant]
     Active Substance: ADENOSINE
  29. PREMARIN [Concomitant]
     Active Substance: ESTROGENS, CONJUGATED
  30. NIACIN. [Concomitant]
     Active Substance: NIACIN
  31. MAXZIDE [Concomitant]
     Active Substance: HYDROCHLOROTHIAZIDE\TRIAMTERENE

REACTIONS (2)
  - Cardiac ablation [Unknown]
  - Conduction disorder [Unknown]

NARRATIVE: CASE EVENT DATE: 20170104
